FAERS Safety Report 11870078 (Version 1)
Quarter: 2015Q4

REPORT INFORMATION
  Report Type: Spontaneous
  Country: IT (occurrence: IT)
  Receive Date: 20151228
  Receipt Date: 20151228
  Transmission Date: 20160305
  Serious: Yes (Other)
  Sender: FDA-Public Use
  Company Number: IT-BAYER-2014-073318

PATIENT
  Age: 58 Year
  Sex: Female

DRUGS (3)
  1. LEGALON [Concomitant]
     Active Substance: MILK THISTLE
     Dosage: DAILY DOSE 1 DF
  2. BETAFERON [Suspect]
     Active Substance: INTERFERON BETA-1B
     Indication: MULTIPLE SCLEROSIS
     Dosage: 250 ?G, QOD
     Route: 058
     Dates: start: 20080101, end: 20140430
  3. SAMYR [Concomitant]
     Active Substance: METHIONINE
     Dosage: DAILY DOSE 1 DF

REACTIONS (3)
  - Injection site nodule [Unknown]
  - Ataxia [Unknown]
  - Transaminases increased [Unknown]

NARRATIVE: CASE EVENT DATE: 20140101
